FAERS Safety Report 18692004 (Version 1)
Quarter: 2021Q1

REPORT INFORMATION
  Report Type: Spontaneous
  Country: DE (occurrence: DE)
  Receive Date: 20210102
  Receipt Date: 20210102
  Transmission Date: 20210419
  Serious: Yes (Other)
  Sender: FDA-Public Use
  Company Number: DE-ACCORD-212788

PATIENT
  Sex: Male

DRUGS (5)
  1. TACROLIMUS. [Suspect]
     Active Substance: TACROLIMUS
     Indication: IMMUNOSUPPRESSION
     Dosage: EXPOSURE WAS INCREASED (TARGET TROUGH LEVEL 10?12 UG/L)
  2. METHYLPREDNISOLONE. [Suspect]
     Active Substance: METHYLPREDNISOLONE
     Indication: IMMUNOSUPPRESSION
  3. ILOPROST/ILOPROST TROMETAMINE/ILOPROST TROMETAMOL [Concomitant]
     Active Substance: ILOPROST TROMETHAMINE
     Dosage: 0.5 NG/KG/MIN INFUSED OVER 6 HOURS
  4. MYCOPHENOLIC ACID. [Suspect]
     Active Substance: MYCOPHENOLIC ACID
     Indication: IMMUNOSUPPRESSION
  5. CANDESARTAN. [Concomitant]
     Active Substance: CANDESARTAN
     Indication: HYPERTENSION

REACTIONS (2)
  - Pneumonia [Unknown]
  - Pyelonephritis [Unknown]
